FAERS Safety Report 7646428-8 (Version None)
Quarter: 2011Q3

REPORT INFORMATION
  Report Type: 
  Country: None (occurrence: None)
  Receive Date: 20110725
  Receipt Date: 20110721
  Transmission Date: 20111222
  Serious: Yes (Life-Threatening, Hospitalization)
  Sender: FDA-Public Use
  Company Number: 2011SP032050

PATIENT
  Age: 53 Year
  Sex: Male
  Weight: 56.9 kg

DRUGS (2)
  1. PEG-INTRON (PEGINTERFERON ALFA-2B /01543001/) [Suspect]
     Indication: HEPATITIS C
     Dosage: SC
     Route: 058
     Dates: start: 20110301
  2. REBETOL [Suspect]
     Indication: HEPATITIS C
     Dosage: PO
     Route: 048
     Dates: start: 20110301

REACTIONS (3)
  - DISEASE RECURRENCE [None]
  - PANCREATITIS ACUTE [None]
  - INTRADUCTAL PAPILLARY MUCINOUS NEOPLASM [None]
